FAERS Safety Report 4748027-4 (Version None)
Quarter: 2005Q3

REPORT INFORMATION
  Report Type: 
  Country: None (occurrence: None)
  Receive Date: 20050818
  Receipt Date: 20050812
  Transmission Date: 20060218
  Serious: No
  Sender: FDA-Public Use
  Company Number: 2005UW12031

PATIENT
  Age: 43 Year
  Sex: Male
  Weight: 73.9 kg

DRUGS (2)
  1. SEROQUEL [Suspect]
     Indication: DEPRESSION
     Route: 048
     Dates: start: 20050321
  2. LEXAPRO [Concomitant]

REACTIONS (2)
  - FURUNCLE [None]
  - LEUKOPENIA [None]
